FAERS Safety Report 4609143-0 (Version None)
Quarter: 2005Q1

REPORT INFORMATION
  Report Type: 
  Country: None (occurrence: None)
  Receive Date: 20050311
  Receipt Date: 20050216
  Transmission Date: 20050727
  Serious: Yes (Hospitalization, Other)
  Sender: FDA-Public Use
  Company Number: 2005039385

PATIENT
  Age: 46 Year
  Sex: Female
  Weight: 54.8852 kg

DRUGS (6)
  1. BEXTRA [Suspect]
     Indication: ARTHRITIS
     Dosage: 20 MG (20 MG, 1 IN 1 D); ORAL
     Route: 048
     Dates: start: 20030214, end: 20030228
  2. HYDROXYCHLOROQUINE PHOSPHATE [Concomitant]
  3. ROFECOXIB [Concomitant]
  4. MULTIVITAMINS (ASCORBIC ACID, ERGOCALCIFEROL, FOLIC ACID, NICOTINAMIDE [Concomitant]
  5. ACETYLSALICYLIC ACID SRT [Concomitant]
  6. CALCIUM GLUCONATE [Concomitant]

REACTIONS (34)
  - ALANINE AMINOTRANSFERASE INCREASED [None]
  - ALOPECIA [None]
  - ARTHRALGIA [None]
  - BACTERIA URINE IDENTIFIED [None]
  - BONE PAIN [None]
  - BURNING SENSATION [None]
  - DRY EYE [None]
  - DYSURIA [None]
  - ERYTHEMA MULTIFORME [None]
  - EYE IRRITATION [None]
  - EYE OEDEMA [None]
  - FATIGUE [None]
  - FEELING ABNORMAL [None]
  - GENITAL DISORDER FEMALE [None]
  - HAIR TEXTURE ABNORMAL [None]
  - LEUKOCYTOSIS [None]
  - LOCALISED OEDEMA [None]
  - LYMPHADENOPATHY [None]
  - MALAISE [None]
  - MYALGIA [None]
  - ODYNOPHAGIA [None]
  - ORAL MUCOSAL DISORDER [None]
  - PHARYNX DISCOMFORT [None]
  - PHOTOPHOBIA [None]
  - PRURITUS [None]
  - PYREXIA [None]
  - RASH [None]
  - RASH PAPULAR [None]
  - RED BLOOD CELLS URINE [None]
  - SKIN EXFOLIATION [None]
  - SYSTEMIC LUPUS ERYTHEMATOSUS [None]
  - TONGUE DISCOLOURATION [None]
  - TONGUE EXFOLIATION [None]
  - WHITE BLOOD CELLS URINE POSITIVE [None]
